FAERS Safety Report 6420514-2 (Version None)
Quarter: 2009Q4

REPORT INFORMATION
  Report Type: 
  Country: None (occurrence: None)
  Receive Date: 20091021
  Receipt Date: 20090721
  Transmission Date: 20100525
  Serious: Yes (Other)
  Sender: FDA-Public Use
  Company Number: SPV1-2009-01069

PATIENT
  Age: 15 Year
  Sex: Female
  Weight: 47.4 kg

DRUGS (2)
  1. VYVANSE [Suspect]
     Indication: ATTENTION DEFICIT/HYPERACTIVITY DISORDER
     Dosage: 40 MG, 1X/DAY: QD, ORAL
     Route: 048
     Dates: start: 20081230, end: 20090524
  2. MELATONIN (MELATONIN) [Concomitant]

REACTIONS (2)
  - CONVULSION [None]
  - OFF LABEL USE [None]
